FAERS Safety Report 17551462 (Version 1)
Quarter: 2020Q1

REPORT INFORMATION
  Report Type: Spontaneous
  Country: IT (occurrence: IT)
  Receive Date: 20200317
  Receipt Date: 20200317
  Transmission Date: 20200409
  Serious: Yes (Life-Threatening)
  Sender: FDA-Public Use
  Company Number: IT-009507513-2003ITA005238

PATIENT
  Age: 60 Year
  Sex: Male
  Weight: 70 kg

DRUGS (3)
  1. CUBICIN [Suspect]
     Active Substance: DAPTOMYCIN
     Indication: STAPHYLOCOCCAL INFECTION
     Dosage: 500 MILLIGRAM, QD, POWDER FOR CONCENTRATE FOR SOLUTION FOR INJECTION/INFUSION
     Route: 042
     Dates: start: 20200122, end: 20200222
  2. RIFAMPIN. [Concomitant]
     Active Substance: RIFAMPIN
     Indication: STAPHYLOCOCCAL INFECTION
     Dosage: 600 MILLIGRAM
     Route: 048
     Dates: start: 20200122, end: 20200225
  3. BACTRIM [Concomitant]
     Active Substance: SULFAMETHOXAZOLE\TRIMETHOPRIM
     Indication: STAPHYLOCOCCAL INFECTION
     Dosage: 2 DOSAGE FORM
     Route: 048
     Dates: start: 20200122, end: 20200225

REACTIONS (2)
  - Interstitial lung disease [Unknown]
  - Pyrexia [Unknown]

NARRATIVE: CASE EVENT DATE: 20200209
